FAERS Safety Report 5601146-2 (Version None)
Quarter: 2008Q1

REPORT INFORMATION
  Report Type: 
  Country: None (occurrence: None)
  Receive Date: 20080122
  Receipt Date: 20080122
  Transmission Date: 20080703
  Serious: Yes (Other)
  Sender: FDA-Public Use
  Company Number: None

PATIENT
  Age: 29 Year
  Sex: Female
  Weight: 50.3493 kg

DRUGS (1)
  1. TRIVORA-21 [Suspect]
     Indication: CONTRACEPTION
     Dosage: ONE TABLET DAILY PO
     Route: 048

REACTIONS (7)
  - ANOREXIA [None]
  - CONSTIPATION [None]
  - MENORRHAGIA [None]
  - MENSTRUATION DELAYED [None]
  - METRORRHAGIA [None]
  - MUSCLE SPASMS [None]
  - NAUSEA [None]
